FAERS Safety Report 5777575-3 (Version None)
Quarter: 2008Q2

REPORT INFORMATION
  Report Type: 
  Country: None (occurrence: None)
  Receive Date: 20080618
  Receipt Date: 20080606
  Transmission Date: 20081010
  Serious: Yes (Disabling, Other)
  Sender: FDA-Public Use
  Company Number: JP-PFIZER INC-2008012123

PATIENT
  Sex: Male
  Weight: 67 kg

DRUGS (4)
  1. VIAGRA [Suspect]
     Route: 048
     Dates: start: 20001007, end: 20001007
  2. TANKARU [Concomitant]
     Indication: BLOOD PHOSPHORUS INCREASED
     Route: 048
  3. LASIX [Concomitant]
     Indication: RENAL FAILURE CHRONIC
     Route: 048
  4. OXAROL [Concomitant]
     Indication: HYPERPARATHYROIDISM SECONDARY
     Route: 042

REACTIONS (6)
  - ARRHYTHMIA [None]
  - ERYTHEMA [None]
  - HOT FLUSH [None]
  - MYOCARDIAL INFARCTION [None]
  - VENTRICULAR ARRHYTHMIA [None]
  - VENTRICULAR EXTRASYSTOLES [None]
